FAERS Safety Report 7712251-9 (Version None)
Quarter: 2011Q3

REPORT INFORMATION
  Report Type: 
  Country: None (occurrence: None)
  Receive Date: 20110826
  Receipt Date: 20110818
  Transmission Date: 20111222
  Serious: Yes (Other)
  Sender: FDA-Public Use
  Company Number: CA-PFIZER INC-2011190896

PATIENT
  Age: 86 Year
  Sex: Female

DRUGS (8)
  1. ESTROGENS [Concomitant]
     Indication: MENOPAUSE
     Dosage: 0.625 MG, 1X/DAY
  2. ISOSORBIDE DINITRATE [Concomitant]
     Indication: PROPHYLAXIS
     Dosage: 30 MG, 3X/DAY
  3. ASPIRIN [Concomitant]
     Indication: PAIN
     Dosage: 81 MG, 1X/DAY
  4. XALATAN [Suspect]
     Indication: GLAUCOMA
     Dosage: 1 GTT, IN BOTH EYES ONCE DAILY
     Route: 047
     Dates: start: 20060101
  5. ALENDRONATE SODIUM [Concomitant]
     Indication: OSTEOPOROSIS
     Dosage: 10 MG, 1X/DAY
  6. MELOXICAM [Concomitant]
     Indication: ARTHRITIS
     Dosage: UNK
  7. FENTANYL [Concomitant]
     Indication: PAIN
     Dosage: 200 MG, 1X/DAY
  8. AMLODIPINE [Concomitant]
     Indication: BLOOD PRESSURE
     Dosage: UNK

REACTIONS (1)
  - MACULAR DEGENERATION [None]
